FAERS Safety Report 16390462 (Version 2)
Quarter: 2019Q2

REPORT INFORMATION
  Report Type: Spontaneous
  Country: US (occurrence: US)
  Receive Date: 20190604
  Receipt Date: 20190607
  Transmission Date: 20190711
  Serious: No
  Sender: FDA-Public Use
  Company Number: US-PFIZER INC-2019234107

PATIENT
  Age: 72 Year
  Sex: Female
  Weight: 84.81 kg

DRUGS (1)
  1. IBRANCE [Suspect]
     Active Substance: PALBOCICLIB
     Dosage: UNK

REACTIONS (4)
  - Tongue discomfort [Not Recovered/Not Resolved]
  - Swollen tongue [Unknown]
  - Glossodynia [Unknown]
  - Stomatitis [Recovering/Resolving]
